FAERS Safety Report 23554381 (Version 8)
Quarter: 2025Q2

REPORT INFORMATION
  Report Type: Spontaneous
  Country: US (occurrence: US)
  Receive Date: 20240222
  Receipt Date: 20250625
  Transmission Date: 20250717
  Serious: Yes (Other)
  Sender: PFIZER
  Company Number: US-PFIZER INC-PV202400023832

PATIENT
  Age: 73 Year
  Sex: Female

DRUGS (1)
  1. XELJANZ XR [Suspect]
     Active Substance: TOFACITINIB CITRATE
     Dosage: 11 MG, 1X/DAY

REACTIONS (6)
  - Rheumatoid arthritis [Unknown]
  - Dry eye [Unknown]
  - Visual impairment [Unknown]
  - Illness [Unknown]
  - Gait disturbance [Unknown]
  - Diarrhoea [Unknown]
